FAERS Safety Report 7363408-0 (Version None)
Quarter: 2011Q1

REPORT INFORMATION
  Report Type: 
  Country: None (occurrence: None)
  Receive Date: 20110321
  Receipt Date: 20110308
  Transmission Date: 20110831
  Serious: Yes (Other)
  Sender: FDA-Public Use
  Company Number: PHHY2011CA19820

PATIENT
  Sex: Female

DRUGS (1)
  1. ACLASTA [Suspect]
     Indication: OSTEOPOROSIS
     Dosage: UNK
     Route: 042
     Dates: start: 20100324

REACTIONS (6)
  - BURNING SENSATION [None]
  - ASTHENIA [None]
  - SKIN ULCER [None]
  - ERYTHEMA [None]
  - SCAB [None]
  - WEIGHT DECREASED [None]
